FAERS Safety Report 23739009 (Version 1)
Quarter: 2024Q2

REPORT INFORMATION
  Report Type: Spontaneous
  Country: US (occurrence: US)
  Receive Date: 20240413
  Receipt Date: 20240413
  Transmission Date: 20240716
  Serious: Yes (Other)
  Sender: FDA-Public Use
  Company Number: US-NOVITIUMPHARMA-2024USNVP00463

PATIENT
  Age: 61 Year

DRUGS (9)
  1. PREDNISONE [Suspect]
     Active Substance: PREDNISONE
     Indication: Myelosuppression
  2. PREDNISONE [Suspect]
     Active Substance: PREDNISONE
     Indication: Cytopenia
  3. SIROLIMUS [Concomitant]
     Active Substance: SIROLIMUS
     Indication: Myelosuppression
  4. SIROLIMUS [Concomitant]
     Active Substance: SIROLIMUS
     Indication: Cytopenia
  5. BASILIXIMAB [Concomitant]
     Active Substance: BASILIXIMAB
     Indication: Myelosuppression
  6. BASILIXIMAB [Concomitant]
     Active Substance: BASILIXIMAB
     Indication: Cytopenia
  7. BASILIXIMAB [Concomitant]
     Active Substance: BASILIXIMAB
  8. CYCLOSPORINE [Concomitant]
     Active Substance: CYCLOSPORINE
     Indication: Myelosuppression
  9. CYCLOSPORINE [Concomitant]
     Active Substance: CYCLOSPORINE
     Indication: Cytopenia

REACTIONS (2)
  - Cytomegalovirus infection reactivation [Recovering/Resolving]
  - Epstein-Barr viraemia [Recovering/Resolving]
